FAERS Safety Report 25705310 (Version 1)
Quarter: 2025Q3

REPORT INFORMATION
  Report Type: Spontaneous
  Country: US (occurrence: None)
  Receive Date: 20250819
  Receipt Date: 20250819
  Transmission Date: 20251020
  Serious: Yes (Death)
  Sender: FDA-CTU
  Company Number: None

PATIENT
  Age: 77 Year
  Sex: Male

DRUGS (1)
  1. LENALIDOMIDE [Suspect]
     Active Substance: LENALIDOMIDE
     Indication: Plasma cell myeloma
     Dosage: 25MG QD ORAL
     Dates: start: 20250730, end: 20250819

REACTIONS (4)
  - Septic shock [None]
  - Staphylococcal bacteraemia [None]
  - Compression fracture [None]
  - Cellulitis [None]

NARRATIVE: CASE EVENT DATE: 20250810
